FAERS Safety Report 6117705-7 (Version None)
Quarter: 2009Q1

REPORT INFORMATION
  Report Type: 
  Country: None (occurrence: None)
  Receive Date: 20090314
  Receipt Date: 20090127
  Transmission Date: 20090719
  Serious: No
  Sender: FDA-Public Use
  Company Number: US-ABBOTT-09P-163-0500391-00

PATIENT
  Sex: Male
  Weight: 64.468 kg

DRUGS (1)
  1. HUMIRA [Suspect]
     Indication: PSORIASIS
     Dosage: 1 IN 2 WEEKS, 2 PENS THEN 1- 8 DAYS LATER
     Dates: start: 20090114

REACTIONS (1)
  - INCORRECT DOSE ADMINISTERED [None]
